FAERS Safety Report 7801600-9 (Version None)
Quarter: 2011Q4

REPORT INFORMATION
  Report Type: 
  Country: None (occurrence: None)
  Receive Date: 20111006
  Receipt Date: 20111006
  Transmission Date: 20120403
  Serious: Yes (Hospitalization)
  Sender: FDA-Public Use
  Company Number: None

PATIENT
  Age: 24 Year
  Sex: Female
  Weight: 48.1 kg

DRUGS (3)
  1. LITHIUM [Suspect]
     Indication: BIPOLAR DISORDER
     Dosage: 150 MG BID PO CHRONIC
     Route: 048
  2. ABILIFY [Concomitant]
  3. KLONOPIN [Suspect]
     Indication: BIPOLAR DISORDER
     Dosage: 0.5 MG BID PO CHRONIC W/ RECENT STOP
     Route: 048

REACTIONS (6)
  - ANTIPSYCHOTIC DRUG LEVEL ABOVE THERAPEUTIC [None]
  - MYOCLONUS [None]
  - TREMOR [None]
  - HYPERREFLEXIA [None]
  - TOXICITY TO VARIOUS AGENTS [None]
  - DRUG WITHDRAWAL CONVULSIONS [None]
